FAERS Safety Report 10923687 (Version 2)
Quarter: 2015Q2

REPORT INFORMATION
  Report Type: Spontaneous
  Country: US (occurrence: US)
  Receive Date: 20150318
  Receipt Date: 20150526
  Transmission Date: 20150821
  Serious: No
  Sender: FDA-Public Use
  Company Number: US-JNJFOC-20140406539

PATIENT
  Sex: Male
  Weight: 67.13 kg

DRUGS (3)
  1. HALDOL DECANOATE [Suspect]
     Active Substance: HALOPERIDOL DECANOATE
     Indication: BIPOLAR DISORDER
     Dosage: EVERY 28-30 DAYS
     Route: 030
  2. HALDOL DECANOATE [Suspect]
     Active Substance: HALOPERIDOL DECANOATE
     Indication: MANIA
     Dosage: EVERY 28-30 DAYS
     Route: 030
  3. HALDOL DECANOATE [Suspect]
     Active Substance: HALOPERIDOL DECANOATE
     Indication: SCHIZOAFFECTIVE DISORDER
     Dosage: EVERY 28-30 DAYS
     Route: 030

REACTIONS (5)
  - Decreased appetite [Not Recovered/Not Resolved]
  - Abnormal loss of weight [Unknown]
  - Insomnia [Not Recovered/Not Resolved]
  - Tic [Not Recovered/Not Resolved]
  - Dyskinesia [Not Recovered/Not Resolved]
